FAERS Safety Report 9925010 (Version 1)
Quarter: 2014Q1

REPORT INFORMATION
  Report Type: Spontaneous
  Country: US (occurrence: None)
  Receive Date: 20140225
  Receipt Date: 20140225
  Transmission Date: 20141002
  Serious: Yes (Hospitalization)
  Sender: FDA-Public Use
  Company Number: None

PATIENT
  Age: 27 Year
  Sex: Female

DRUGS (1)
  1. MIRENA [Suspect]
     Dates: start: 20121123, end: 20121221

REACTIONS (6)
  - Cholecystectomy [None]
  - Renal failure acute [None]
  - Ovarian cyst [None]
  - Hormone level abnormal [None]
  - Pregnancy with contraceptive device [None]
  - Abortion spontaneous [None]
